FAERS Safety Report 10149784 (Version 1)
Quarter: 2014Q2

REPORT INFORMATION
  Report Type: Spontaneous
  Country: MX (occurrence: MX)
  Receive Date: 20140502
  Receipt Date: 20140502
  Transmission Date: 20141212
  Serious: Yes (Death)
  Sender: FDA-Public Use
  Company Number: MX-UCBSA-119906

PATIENT
  Age: 89 Year
  Sex: Female

DRUGS (4)
  1. NEUPRO [Suspect]
     Indication: PARKINSON^S DISEASE
     Route: 061
  2. NEUPRO [Suspect]
     Indication: PARKINSON^S DISEASE
     Dosage: 4 MG
     Route: 061
  3. NEUPRO [Suspect]
     Indication: PARKINSON^S DISEASE
     Dosage: 6 MG
     Route: 061
  4. NEUPRO [Suspect]
     Indication: PARKINSON^S DISEASE
     Dosage: 4 MG
     Route: 061

REACTIONS (2)
  - Cardiac disorder [Fatal]
  - Obsessive-compulsive disorder [Recovered/Resolved]
